FAERS Safety Report 23274029 (Version 1)
Quarter: 2023Q4

REPORT INFORMATION
  Report Type: Spontaneous
  Country: US (occurrence: US)
  Receive Date: 20231208
  Receipt Date: 20231208
  Transmission Date: 20240110
  Serious: No
  Sender: FDA-Public Use
  Company Number: US-ABBVIE-5526727

PATIENT
  Age: 30 Year
  Sex: Male

DRUGS (3)
  1. MAVYRET [Suspect]
     Active Substance: GLECAPREVIR\PIBRENTASVIR
     Indication: Chronic hepatitis C
     Dosage: TIME INTERVAL: 0.33333333 DAYS
     Route: 048
     Dates: start: 20231121
  2. SUBOXONE [Concomitant]
     Active Substance: BUPRENORPHINE HYDROCHLORIDE\NALOXONE HYDROCHLORIDE
     Indication: Adverse event
  3. CLONAZEPAM [Concomitant]
     Active Substance: CLONAZEPAM
     Indication: Seizure prophylaxis

REACTIONS (1)
  - Swelling [Unknown]

NARRATIVE: CASE EVENT DATE: 20230101
